FAERS Safety Report 22008679 (Version 2)
Quarter: 2023Q1

REPORT INFORMATION
  Report Type: Report from Study
  Country: US (occurrence: US)
  Receive Date: 20230219
  Receipt Date: 20230224
  Transmission Date: 20230417
  Serious: Yes (Hospitalization)
  Sender: FDA-Public Use
  Company Number: US-ABBVIE-4310757

PATIENT
  Age: 69 Year
  Sex: Male

DRUGS (15)
  1. VENCLEXTA [Suspect]
     Active Substance: VENETOCLAX
     Indication: Plasma cell myeloma
     Route: 048
  2. Multiple Vitamins minerals [Concomitant]
     Indication: Product used for unknown indication
  3. Vitamin B1 100 mg [Concomitant]
     Indication: Product used for unknown indication
     Dosage: 100MG TABLET
     Route: 048
  4. Omnicef 300 mg [Concomitant]
     Indication: Product used for unknown indication
     Dosage: 300MG CAPSULE
     Route: 048
  5. Zofran 4 mg [Concomitant]
     Indication: Nausea
     Dosage: 4MG TABLET
     Route: 048
  6. PHENERGAN W/ CODEINE [Concomitant]
     Active Substance: CODEINE PHOSPHATE\PROMETHAZINE HYDROCHLORIDE
     Indication: Cough
  7. Advil/Motrin [Concomitant]
     Indication: Pyrexia
     Dosage: 100MG TABLET
     Route: 048
  8. TYLENOL [Concomitant]
     Active Substance: ACETAMINOPHEN
     Indication: Product used for unknown indication
     Dosage: 325MG TABLET
     Route: 048
  9. NOXAFIL [Concomitant]
     Active Substance: POSACONAZOLE
     Indication: Product used for unknown indication
  10. MEPRON [Concomitant]
     Active Substance: ATOVAQUONE
     Indication: Product used for unknown indication
     Dosage: 750MG/5ML SUSPENSION
     Route: 048
  11. MEPRON [Concomitant]
     Active Substance: ATOVAQUONE
     Indication: Product used for unknown indication
     Dosage: 750MG/5ML SUSPENSION
  12. CYMBALTA [Concomitant]
     Active Substance: DULOXETINE HYDROCHLORIDE
     Indication: Product used for unknown indication
     Dosage: 60MG
     Route: 048
  13. DECADRON [Concomitant]
     Active Substance: DEXAMETHASONE
     Indication: Product used for unknown indication
     Dosage: 4MG TABLET
     Route: 048
  14. Tessalon 200 mg [Concomitant]
     Indication: Product used for unknown indication
     Dosage: 200MG CAPSULE
     Route: 048
  15. ZOVIRAX [Concomitant]
     Active Substance: ACYCLOVIR
     Indication: Product used for unknown indication
     Route: 048

REACTIONS (2)
  - Transfusion [Unknown]
  - Off label use [Unknown]

NARRATIVE: CASE EVENT DATE: 20230214
